FAERS Safety Report 7884655-5 (Version None)
Quarter: 2011Q4

REPORT INFORMATION
  Report Type: 
  Country: None (occurrence: None)
  Receive Date: 20111102
  Receipt Date: 20111027
  Transmission Date: 20120403
  Serious: Yes (Hospitalization, Other)
  Sender: FDA-Public Use
  Company Number: US-MERCK-0912USA03686

PATIENT
  Age: 50 Year
  Sex: Female
  Weight: 58 kg

DRUGS (10)
  1. FOSAMAX [Suspect]
     Route: 048
     Dates: start: 20000101, end: 20090601
  2. GLYBURIDE [Concomitant]
     Indication: TYPE 2 DIABETES MELLITUS
     Route: 065
  3. CARTIA XT [Concomitant]
     Route: 065
  4. FOSAMAX [Suspect]
     Route: 048
     Dates: start: 19950101, end: 20000101
  5. ASPIRIN [Concomitant]
     Route: 065
  6. FOSAMAX [Suspect]
     Indication: OSTEOPOROSIS
     Route: 048
     Dates: start: 20051201
  7. ALENDRONATE SODIUM [Suspect]
     Route: 048
     Dates: start: 20080401, end: 20090601
  8. FOSAMAX [Suspect]
     Route: 048
     Dates: start: 20020101, end: 20040101
  9. EFFEXOR [Concomitant]
     Indication: DEPRESSION
     Route: 065
  10. LASIX [Concomitant]
     Route: 065

REACTIONS (24)
  - ANAEMIA POSTOPERATIVE [None]
  - MONOPLEGIA [None]
  - FRACTURE NONUNION [None]
  - FRACTURE DELAYED UNION [None]
  - ATROPHY [None]
  - FEMUR FRACTURE [None]
  - RHEUMATOID ARTHRITIS [None]
  - ARTHRALGIA [None]
  - BURSITIS [None]
  - DEPRESSION [None]
  - HAEMORRHAGIC DIATHESIS [None]
  - OEDEMA PERIPHERAL [None]
  - OSTEOARTHRITIS [None]
  - ANXIETY [None]
  - MUSCLE SPASMS [None]
  - SPINAL OSTEOARTHRITIS [None]
  - WEIGHT INCREASED [None]
  - EXOSTOSIS [None]
  - ASTHMA [None]
  - FALL [None]
  - SUICIDAL IDEATION [None]
  - LACERATION [None]
  - GROIN PAIN [None]
  - FOOT FRACTURE [None]
